FAERS Safety Report 9290458 (Version 1)
Quarter: 2013Q2

REPORT INFORMATION
  Report Type: Report from Study
  Country: US (occurrence: US)
  Receive Date: 20130514
  Receipt Date: 20130514
  Transmission Date: 20140414
  Serious: Yes (Hospitalization, Other)
  Sender: FDA-Public Use
  Company Number: US-RB-013690-10

PATIENT
  Age: 53 Year
  Sex: Male

DRUGS (4)
  1. SUBOXONE TABLET [Suspect]
     Indication: DRUG DEPENDENCE
     Route: 060
     Dates: start: 2010
  2. SUBOXONE TABLET [Suspect]
     Indication: PAIN
     Route: 060
     Dates: start: 2010
  3. SUBOXONE FILM [Suspect]
     Indication: PAIN
     Dosage: SUBOXONE FILM
     Route: 060
  4. SUBOXONE FILM [Suspect]
     Indication: DRUG DEPENDENCE
     Dosage: SUBOXONE FILM
     Route: 060

REACTIONS (18)
  - Drug withdrawal syndrome [Not Recovered/Not Resolved]
  - Anxiety [Not Recovered/Not Resolved]
  - Insomnia [Not Recovered/Not Resolved]
  - Hyperhidrosis [Not Recovered/Not Resolved]
  - Feeling jittery [Not Recovered/Not Resolved]
  - Dysphonia [Not Recovered/Not Resolved]
  - Tremor [Not Recovered/Not Resolved]
  - Drug ineffective [Not Recovered/Not Resolved]
  - Accident at work [Recovered/Resolved]
  - Head injury [Unknown]
  - Fracture [Recovered/Resolved]
  - Concussion [Recovered/Resolved]
  - Pain [Not Recovered/Not Resolved]
  - Cerebral haemorrhage [Recovered/Resolved]
  - Contusion [Recovered/Resolved]
  - Amnesia [Not Recovered/Not Resolved]
  - Convulsion [Recovered/Resolved]
  - Limb injury [Recovered/Resolved]
